FAERS Safety Report 12932780 (Version 1)
Quarter: 2016Q4

REPORT INFORMATION
  Report Type: Spontaneous
  Country: US (occurrence: US)
  Receive Date: 20161111
  Receipt Date: 20161111
  Transmission Date: 20170207
  Serious: Yes (Other)
  Sender: FDA-Public Use
  Company Number: US-PFIZER INC-2016521146

PATIENT
  Sex: Female

DRUGS (1)
  1. LYRICA [Suspect]
     Active Substance: PREGABALIN
     Indication: PAIN
     Dosage: UNK

REACTIONS (5)
  - Drug hypersensitivity [Unknown]
  - Emotional distress [Unknown]
  - Suicidal ideation [Unknown]
  - Mood swings [Unknown]
  - Depressed mood [Unknown]
